FAERS Safety Report 17048249 (Version 1)
Quarter: 2019Q4

REPORT INFORMATION
  Report Type: Spontaneous
  Country: US (occurrence: US)
  Receive Date: 20191118
  Receipt Date: 20191118
  Transmission Date: 20200122
  Serious: Yes (Other)
  Sender: FDA-Public Use
  Company Number: None

PATIENT
  Age: 39 Year
  Sex: Male
  Weight: 81 kg

DRUGS (1)
  1. WIXELA INHUB [Suspect]
     Active Substance: FLUTICASONE PROPIONATE\SALMETEROL XINAFOATE
     Indication: ASTHMA
     Route: 055
     Dates: start: 20191030, end: 20191113

REACTIONS (5)
  - Dyspnoea [None]
  - Product substitution issue [None]
  - Drug ineffective [None]
  - Wheezing [None]
  - Chest discomfort [None]

NARRATIVE: CASE EVENT DATE: 20191113
